FAERS Safety Report 5202106-6 (Version None)
Quarter: 2007Q1

REPORT INFORMATION
  Report Type: 
  Country: None (occurrence: None)
  Receive Date: 20070109
  Receipt Date: 20070104
  Transmission Date: 20070707
  Serious: Yes (Hospitalization)
  Sender: FDA-Public Use
  Company Number: FR-AVENTIS-200611581FR

PATIENT
  Age: 72 Year
  Sex: Male

DRUGS (4)
  1. LOVENOX [Suspect]
     Route: 058
     Dates: start: 20060217, end: 20060313
  2. FLECAINIDE ACETATE [Concomitant]
     Route: 048
     Dates: start: 20060217
  3. ATACAND [Concomitant]
     Dates: start: 20060217
  4. AMIODARONE HCL [Concomitant]
     Route: 048

REACTIONS (2)
  - ATRIAL FIBRILLATION [None]
  - SKIN NECROSIS [None]
